FAERS Safety Report 6087528-6 (Version None)
Quarter: 2009Q1

REPORT INFORMATION
  Report Type: 
  Country: None (occurrence: None)
  Receive Date: 20090218
  Receipt Date: 20090218
  Transmission Date: 20090719
  Serious: Yes (Other)
  Sender: FDA-Public Use
  Company Number: None

PATIENT
  Age: 70 Year
  Sex: Male
  Weight: 71.6683 kg

DRUGS (1)
  1. CENTRUM CARDIO WYETH CONSUMER HEALTHCARE, NJ [Suspect]
     Indication: BLOOD CHOLESTEROL ABNORMAL
     Dosage: 2 TABLETS QD PO  (NOT ON FEB 16)
     Route: 048
     Dates: start: 20090215, end: 20090217

REACTIONS (2)
  - MENTAL DISORDER [None]
  - PRODUCT CONTAMINATION [None]
